FAERS Safety Report 18524514 (Version 3)
Quarter: 2020Q4

REPORT INFORMATION
  Report Type: Spontaneous
  Country: US (occurrence: US)
  Receive Date: 20201119
  Receipt Date: 20201216
  Transmission Date: 20210114
  Serious: No
  Sender: FDA-Public Use
  Company Number: US-PFIZER INC-2020453651

PATIENT
  Age: 49 Year
  Sex: Female

DRUGS (4)
  1. HYDROXYCHLOROQUINE SULFATE. [Concomitant]
     Active Substance: HYDROXYCHLOROQUINE SULFATE
     Dosage: UNK
  2. SPIRONOLACTONE. [Concomitant]
     Active Substance: SPIRONOLACTONE
     Dosage: 50 MG
  3. XELJANZ [Suspect]
     Active Substance: TOFACITINIB CITRATE
     Indication: RHEUMATOID ARTHRITIS
     Dosage: 5 MG, 2X/DAY
     Route: 048
     Dates: start: 202009, end: 2020
  4. CELECOXIB. [Concomitant]
     Active Substance: CELECOXIB
     Dosage: 200 MG

REACTIONS (2)
  - Alopecia [Unknown]
  - Nasal congestion [Unknown]

NARRATIVE: CASE EVENT DATE: 202011
